FAERS Safety Report 19949874 (Version 2)
Quarter: 2021Q4

REPORT INFORMATION
  Report Type: Spontaneous
  Country: BR (occurrence: BR)
  Receive Date: 20211013
  Receipt Date: 20211025
  Transmission Date: 20220304
  Serious: No
  Sender: FDA-Public Use
  Company Number: NVSC2021BR232940

PATIENT
  Sex: Male

DRUGS (1)
  1. ZOLPIDEM TARTRATE [Suspect]
     Active Substance: ZOLPIDEM TARTRATE
     Indication: Insomnia
     Dosage: 1 DF, UNKNOWN
     Route: 065

REACTIONS (5)
  - Anxiety [Unknown]
  - Insomnia [Unknown]
  - Incorrect dose administered [Unknown]
  - Drug ineffective [Unknown]
  - Wrong technique in product usage process [Unknown]
